FAERS Safety Report 8928009 (Version 1)
Quarter: 2012Q4

REPORT INFORMATION
  Report Type: Spontaneous
  Country: US (occurrence: None)
  Receive Date: 20121121
  Receipt Date: 20121121
  Transmission Date: 20130627
  Serious: Yes (Other)
  Sender: FDA-Public Use
  Company Number: None

PATIENT
  Age: 13 Year
  Sex: Male
  Weight: 59.1 kg

DRUGS (2)
  1. ISOTRETINOIN [Suspect]
     Indication: CYSTIC ACNE
     Route: 048
     Dates: start: 201011, end: 201104
  2. ISOTRETINOIN [Suspect]
     Indication: CYSTIC ACNE

REACTIONS (10)
  - Flatulence [None]
  - Crohn^s disease [None]
  - Muscle atrophy [None]
  - Platelet count increased [None]
  - Protein total decreased [None]
  - Blood albumin decreased [None]
  - Haemoglobin decreased [None]
  - Haematocrit decreased [None]
  - Weight decreased [None]
  - Patellofemoral pain syndrome [None]
